FAERS Safety Report 5289794-3 (Version None)
Quarter: 2007Q2

REPORT INFORMATION
  Report Type: 
  Country: None (occurrence: None)
  Receive Date: 20070406
  Receipt Date: 20070307
  Transmission Date: 20071010
  Serious: Yes (Death, Hospitalization, Other)
  Sender: FDA-Public Use
  Company Number: US-PFIZER INC-2005078631

PATIENT
  Sex: Female
  Weight: 80 kg

DRUGS (7)
  1. BEXTRA [Suspect]
     Indication: PAIN IN EXTREMITY
     Dates: start: 20030429, end: 20030508
  2. BEXTRA [Suspect]
  3. VIOXX [Suspect]
     Indication: PAIN
     Dates: start: 20030429, end: 20030508
  4. ASPIRIN [Concomitant]
     Dates: start: 20020101, end: 20030507
  5. TRAMADOL HCL [Concomitant]
  6. ACTIVELLA [Concomitant]
  7. SULINDAC [Concomitant]

REACTIONS (1)
  - PULMONARY EMBOLISM [None]
